FAERS Safety Report 24617604 (Version 1)
Quarter: 2024Q4

REPORT INFORMATION
  Report Type: Spontaneous
  Country: US (occurrence: US)
  Receive Date: 20241114
  Receipt Date: 20241114
  Transmission Date: 20250115
  Serious: Yes (Hospitalization)
  Sender: ZYDUS PHARM
  Company Number: US-CADILA HEALTHCARE LIMITED-US-ZYDUS-114598

PATIENT

DRUGS (5)
  1. SCOPOLAMINE [Suspect]
     Active Substance: SCOPOLAMINE
     Indication: Product used for unknown indication
     Dosage: UNK
     Route: 065
     Dates: start: 2024
  2. BRENTUXIMAB VEDOTIN [Concomitant]
     Active Substance: BRENTUXIMAB VEDOTIN
     Indication: Product used for unknown indication
     Dosage: UNK, UNK
     Route: 065
     Dates: start: 20240731, end: 2024
  3. BRENTUXIMAB VEDOTIN [Concomitant]
     Active Substance: BRENTUXIMAB VEDOTIN
     Dosage: 119
     Route: 065
     Dates: start: 20241002, end: 20241002
  4. NIVOLUMAB [Concomitant]
     Active Substance: NIVOLUMAB
     Indication: Product used for unknown indication
     Dosage: UNK, UNK
     Route: 065
     Dates: start: 20240731, end: 2024
  5. NIVOLUMAB [Concomitant]
     Active Substance: NIVOLUMAB
     Dosage: 199
     Dates: start: 20241002, end: 20241002

REACTIONS (4)
  - Mydriasis [Recovered/Resolved]
  - Ocular hyperaemia [Recovered/Resolved]
  - Lacrimation increased [Recovered/Resolved]
  - Anisocoria [Recovered/Resolved]

NARRATIVE: CASE EVENT DATE: 20241001
